FAERS Safety Report 4809518-0 (Version None)
Quarter: 2005Q4

REPORT INFORMATION
  Report Type: 
  Country: None (occurrence: None)
  Receive Date: 20051025
  Receipt Date: 20050805
  Transmission Date: 20060501
  Serious: Yes (Death, Life-Threatening, Disabling)
  Sender: FDA-Public Use
  Company Number: US-MERCK-0508USA01419

PATIENT
  Age: 85 Year
  Sex: Female

DRUGS (1)
  1. PRIMAXIN [Suspect]
     Route: 042
     Dates: start: 20000101, end: 20000101

REACTIONS (2)
  - CONVULSION [None]
  - DEATH [None]
